FAERS Safety Report 15662824 (Version 4)
Quarter: 2019Q2

REPORT INFORMATION
  Report Type: Report from Study
  Country: None (occurrence: US)
  Receive Date: 20181127
  Receipt Date: 20190506
  Transmission Date: 20190711
  Serious: Yes (Other)
  Sender: FDA-Public Use
  Company Number: US-ABBVIE-18K-163-2568607-00

PATIENT
  Sex: Male

DRUGS (2)
  1. HUMIRA [Suspect]
     Active Substance: ADALIMUMAB
     Indication: ANKYLOSING SPONDYLITIS
  2. HUMIRA [Suspect]
     Active Substance: ADALIMUMAB
     Indication: PSORIATIC ARTHROPATHY
     Route: 058

REACTIONS (8)
  - Neuroma [Unknown]
  - Limb injury [Unknown]
  - Arthropod bite [Unknown]
  - Melanocytic naevus [Unknown]
  - Rocky mountain spotted fever [Unknown]
  - Accident [Unknown]
  - Condition aggravated [Unknown]
  - Skin exfoliation [Not Recovered/Not Resolved]
